FAERS Safety Report 8277710-1 (Version None)
Quarter: 2012Q2

REPORT INFORMATION
  Report Type: 
  Country: None (occurrence: None)
  Receive Date: 20120412
  Receipt Date: 20120403
  Transmission Date: 20120825
  Serious: Yes (Other)
  Sender: FDA-Public Use
  Company Number: CA-JNJFOC-20120401654

PATIENT
  Sex: Male
  Weight: 86 kg

DRUGS (3)
  1. METHOTREXATE [Concomitant]
     Route: 048
  2. METFORMIN HCL [Concomitant]
     Route: 065
  3. REMICADE [Suspect]
     Indication: ANKYLOSING SPONDYLITIS
     Dosage: START DATE AROUND 2001
     Route: 042
     Dates: start: 20010101

REACTIONS (4)
  - ROAD TRAFFIC ACCIDENT [None]
  - HEADACHE [None]
  - POST-TRAUMATIC NECK SYNDROME [None]
  - BACK PAIN [None]
